FAERS Safety Report 4333732-4 (Version None)
Quarter: 2004Q2

REPORT INFORMATION
  Report Type: 
  Country: None (occurrence: None)
  Receive Date: 20040406
  Receipt Date: 20040406
  Transmission Date: 20050107
  Serious: Yes (Other)
  Sender: FDA-Public Use
  Company Number: None

PATIENT
  Age: 54 Year
  Sex: Female

DRUGS (4)
  1. OMEPRAZOLE [Suspect]
     Indication: HIATUS HERNIA
     Dosage: 40 MG BID ORAL
     Route: 048
     Dates: start: 20040308, end: 20040312
  2. DUPHALAC [Concomitant]
  3. APOPINDOL [Concomitant]
  4. LEXAURIN [Concomitant]

REACTIONS (5)
  - ABDOMINAL PAIN UPPER [None]
  - FATIGUE [None]
  - FEELING COLD [None]
  - SENSATION OF PRESSURE [None]
  - SOMNOLENCE [None]
